FAERS Safety Report 4529136-1 (Version None)
Quarter: 2004Q4

REPORT INFORMATION
  Report Type: 
  Country: None (occurrence: None)
  Receive Date: 20041214
  Receipt Date: 20041201
  Transmission Date: 20050328
  Serious: Yes (Other)
  Sender: FDA-Public Use
  Company Number: 2004101349

PATIENT
  Age: 57 Year
  Sex: Female

DRUGS (3)
  1. SETRALINE (SERTRALINE) [Suspect]
     Indication: DEPRESSION
     Dosage: 50 MG (50 MG, 1 IN 1 D), ORAL
     Route: 048
  2. MICONAZOLE NITRATE [Concomitant]
  3. NYSTATIN [Concomitant]

REACTIONS (3)
  - DYSPNOEA [None]
  - EPIGLOTTIC OEDEMA [None]
  - OESOPHAGEAL CANDIDIASIS [None]
